FAERS Safety Report 4302747-4 (Version None)
Quarter: 2004Q1

REPORT INFORMATION
  Report Type: 
  Country: None (occurrence: None)
  Receive Date: 20040224
  Receipt Date: 20020826
  Transmission Date: 20041129
  Serious: No
  Sender: FDA-Public Use
  Company Number: US-BRISTOL-MYERS SQUIBB COMPANY-12013181

PATIENT
  Age: 33 Year
  Sex: Female
  Weight: 54 kg

DRUGS (1)
  1. KENALOG-10 [Suspect]
     Indication: ASTHMA
     Route: 058
     Dates: start: 20020215, end: 20020215

REACTIONS (3)
  - FISTULA [None]
  - INJECTION SITE ATROPHY [None]
  - MUSCLE ATROPHY [None]
